FAERS Safety Report 17744344 (Version 1)
Quarter: 2020Q2

REPORT INFORMATION
  Report Type: Spontaneous
  Country: US (occurrence: US)
  Receive Date: 20200505
  Receipt Date: 20200505
  Transmission Date: 20200714
  Serious: No
  Sender: FDA-Public Use
  Company Number: US-ROCHE-1761938

PATIENT
  Age: 75 Year
  Sex: Male
  Weight: 94.43 kg

DRUGS (15)
  1. PEPTO-BISMOL [Concomitant]
     Active Substance: BISMUTH SUBSALICYLATE
     Indication: NAUSEA
  2. ESBRIET [Suspect]
     Active Substance: PIRFENIDONE
     Dosage: TAKING 3 CAPSULES 3 TIMES PER DAY
     Route: 048
     Dates: start: 201605, end: 20161018
  3. LISINOPRIL. [Concomitant]
     Active Substance: LISINOPRIL
     Route: 065
  4. LANTUS [Concomitant]
     Active Substance: INSULIN GLARGINE
     Indication: DIABETES MELLITUS
     Route: 065
  5. SOTALOL HCL [Concomitant]
     Active Substance: SOTALOL
     Route: 065
  6. KLOR-CON [Concomitant]
     Active Substance: POTASSIUM CHLORIDE
     Route: 065
  7. FUROSEMIDE. [Concomitant]
     Active Substance: FUROSEMIDE
  8. TAMSULOSIN HCL [Concomitant]
     Active Substance: TAMSULOSIN HYDROCHLORIDE
  9. ESBRIET [Suspect]
     Active Substance: PIRFENIDONE
     Indication: IDIOPATHIC PULMONARY FIBROSIS
     Dosage: TAKING 2 CAPSULES 3 TIMES PER DAY ;ONGOING: YES
     Route: 048
     Dates: start: 20160508
  10. OXYGEN. [Concomitant]
     Active Substance: OXYGEN
  11. ASPIRIN [ACETYLSALICYLIC ACID] [Concomitant]
     Active Substance: ASPIRIN
  12. ZOLOFT [Concomitant]
     Active Substance: SERTRALINE HYDROCHLORIDE
     Route: 065
  13. OFEV [Concomitant]
     Active Substance: NINTEDANIB
  14. LASIX [Concomitant]
     Active Substance: FUROSEMIDE
  15. TEMAZEPAM. [Concomitant]
     Active Substance: TEMAZEPAM
     Route: 065

REACTIONS (6)
  - Abdominal pain upper [Unknown]
  - Nausea [Recovered/Resolved with Sequelae]
  - Muscular weakness [Unknown]
  - Diarrhoea [Recovered/Resolved with Sequelae]
  - Gastrooesophageal reflux disease [Unknown]
  - Drug intolerance [Recovered/Resolved]

NARRATIVE: CASE EVENT DATE: 201605
